FAERS Safety Report 8067064-8 (Version None)
Quarter: 2012Q1

REPORT INFORMATION
  Report Type: 
  Country: None (occurrence: None)
  Receive Date: 20120124
  Receipt Date: 20120118
  Transmission Date: 20120608
  Serious: Yes (Hospitalization)
  Sender: FDA-Public Use
  Company Number: US-ACTELION-A-NJ2012-59169

PATIENT

DRUGS (5)
  1. COUMADIN [Concomitant]
  2. DIGOXIN [Concomitant]
  3. LASIX [Concomitant]
  4. TRACLEER [Suspect]
     Indication: PULMONARY ARTERIAL HYPERTENSION
     Dosage: UNK
     Route: 048
     Dates: start: 20100306
  5. PLAVIX [Concomitant]

REACTIONS (2)
  - CHEST PAIN [None]
  - BACK PAIN [None]
